FAERS Safety Report 8088623-2 (Version None)
Quarter: 2012Q1

REPORT INFORMATION
  Report Type: 
  Country: None (occurrence: None)
  Receive Date: 20120128
  Receipt Date: 20110503
  Transmission Date: 20120608
  Serious: No
  Sender: FDA-Public Use
  Company Number: US-ABBOTT-11P-163-0723282-00

PATIENT
  Weight: 90.8 kg

DRUGS (2)
  1. MERCAPTOPURINE [Concomitant]
     Indication: CROHN'S DISEASE
  2. HUMIRA [Suspect]
     Indication: CROHN'S DISEASE
     Dates: start: 20100601, end: 20110401

REACTIONS (2)
  - UPPER RESPIRATORY TRACT INFECTION [None]
  - EAR INFECTION [None]
